FAERS Safety Report 6499027-8 (Version None)
Quarter: 2009Q4

REPORT INFORMATION
  Report Type: 
  Country: None (occurrence: None)
  Receive Date: 20091127
  Receipt Date: 20081013
  Transmission Date: 20100525
  Serious: Yes (Other)
  Sender: FDA-Public Use
  Company Number: 279070

PATIENT
  Age: 9 Year
  Sex: Male
  Weight: 57.7 kg

DRUGS (2)
  1. GLUCAGEN [Suspect]
     Indication: HYPOGLYCAEMIA
     Dates: start: 20080830
  2. NOVOLOG [Suspect]
     Indication: TYPE 1 DIABETES MELLITUS
     Dosage: SUBCUTAN.-PUMP
     Route: 058

REACTIONS (3)
  - DEVICE MALFUNCTION [None]
  - HYPOGLYCAEMIC SEIZURE [None]
  - HYPOGLYCAEMIC UNCONSCIOUSNESS [None]
